FAERS Safety Report 11320040 (Version 1)
Quarter: 2015Q3

REPORT INFORMATION
  Report Type: Spontaneous
  Country: US (occurrence: None)
  Receive Date: 20150728
  Receipt Date: 20150728
  Transmission Date: 20151125
  Serious: Yes (Hospitalization)
  Sender: FDA-Public Use
  Company Number: None

PATIENT
  Age: 16 Year
  Sex: Male
  Weight: 70.31 kg

DRUGS (1)
  1. RIZATRIPTAN BENZOATE TABLET 10MG ENCORE PHARMACEUTICALS LTD, INDIA [Suspect]
     Active Substance: RIZATRIPTAN BENZOATE
     Indication: MIGRAINE
     Dosage: 1 PILL AT ONSET 2 PILLS AS NNEDE  TAKEN BY MOUTH
     Route: 048
     Dates: start: 20150715, end: 20150716

REACTIONS (6)
  - Disorientation [None]
  - Confusional state [None]
  - Amnesia [None]
  - Feeling abnormal [None]
  - Heart rate increased [None]
  - Aphasia [None]

NARRATIVE: CASE EVENT DATE: 20150718
